FAERS Safety Report 6058496-8 (Version None)
Quarter: 2009Q1

REPORT INFORMATION
  Report Type: 
  Country: None (occurrence: None)
  Receive Date: 20090130
  Receipt Date: 20090122
  Transmission Date: 20090719
  Serious: Yes (Hospitalization, Other)
  Sender: FDA-Public Use
  Company Number: PHBS2005US02256

PATIENT
  Sex: Male

DRUGS (6)
  1. LIORESAL [Suspect]
     Indication: MUSCLE SPASTICITY
     Route: 037
  2. HYDROMORPHONE HCL [Concomitant]
  3. FENTANYL CITRATE [Concomitant]
  4. BUPIVACAINE [Concomitant]
  5. CLONIDINE [Concomitant]
  6. METHADONE HCL [Concomitant]

REACTIONS (2)
  - PAIN [None]
  - WITHDRAWAL SYNDROME [None]
